FAERS Safety Report 8763916 (Version 2)
Quarter: 2012Q4

REPORT INFORMATION
  Report Type: 
  Country: DE (occurrence: DE)
  Receive Date: 20120823
  Receipt Date: 20121210
  Transmission Date: 20130627
  Serious: Yes (Hospitalization, Other)
  Sender: FDA-Public Use
  Company Number: DE-ELI_LILLY_AND_COMPANY-DE201208006604

PATIENT
  Sex: Female

DRUGS (6)
  1. FORSTEO [Suspect]
     Indication: OSTEOPOROSIS
     Dosage: UNK
     Route: 058
     Dates: start: 20110628, end: 20120701
  2. FORSTEO [Suspect]
     Dosage: UNK
     Dates: start: 201208, end: 20120901
  3. RAMIPRIL [Concomitant]
     Dosage: UNK
  4. CARMEN [Concomitant]
     Dosage: UNK
  5. FALITHROM [Concomitant]
     Dosage: UNK
  6. DIGITOXIN [Concomitant]
     Dosage: UNK

REACTIONS (6)
  - Cataract [Unknown]
  - Cataract [Recovered/Resolved]
  - Tachyarrhythmia [Recovered/Resolved]
  - Atrial fibrillation [Recovered/Resolved]
  - Dizziness [Recovered/Resolved]
  - Nausea [Recovered/Resolved]
